FAERS Safety Report 6925403-2 (Version None)
Quarter: 2010Q3

REPORT INFORMATION
  Report Type: 
  Country: None (occurrence: None)
  Receive Date: 20100816
  Receipt Date: 20100809
  Transmission Date: 20110219
  Serious: Yes (Death, Hospitalization)
  Sender: FDA-Public Use
  Company Number: AT-ROCHE-656578

PATIENT
  Sex: Male

DRUGS (8)
  1. MYCOPHENOLATE MOFETIL [Suspect]
     Route: 048
     Dates: start: 20081119, end: 20091002
  2. BELATACEPT [Suspect]
     Route: 042
     Dates: start: 20081119, end: 20091002
  3. BLINDED BASILIXIMAB [Suspect]
     Route: 042
     Dates: start: 20081119
  4. BLINDED BASILIXIMAB [Suspect]
     Route: 042
     Dates: start: 20081123, end: 20081123
  5. PREDNISOLONE [Concomitant]
     Dates: start: 20081123, end: 20090311
  6. METHYLPREDNISOLONE [Concomitant]
     Dates: start: 20081118, end: 20081122
  7. VALGANCICLOVIR [Concomitant]
     Dates: start: 20081125, end: 20090603
  8. GANCICLOVIR [Concomitant]
     Dates: start: 20081119, end: 20081124

REACTIONS (3)
  - EPSTEIN-BARR VIRUS ASSOCIATED LYMPHOPROLIFERATIVE DISORDER [None]
  - GASTRIC ULCER PERFORATION [None]
  - LIVER ABSCESS [None]
